FAERS Safety Report 21643089 (Version 1)
Quarter: 2022Q4

REPORT INFORMATION
  Report Type: Spontaneous
  Country: US (occurrence: US)
  Receive Date: 20221125
  Receipt Date: 20221125
  Transmission Date: 20230113
  Serious: No
  Sender: FDA-Public Use
  Company Number: US-SANOFI-01375813

PATIENT
  Age: 11 Year
  Sex: Female

DRUGS (2)
  1. CEREZYME [Suspect]
     Active Substance: IMIGLUCERASE
     Indication: Gaucher^s disease
     Dosage: UNK UNK, QOW
     Dates: start: 20120404
  2. CEREZYME [Suspect]
     Active Substance: IMIGLUCERASE
     Dosage: 4400IU, QOW
     Dates: start: 20211217

REACTIONS (1)
  - Illness [Unknown]

NARRATIVE: CASE EVENT DATE: 20221109
